FAERS Safety Report 10164798 (Version 1)
Quarter: 2014Q2

REPORT INFORMATION
  Report Type: Spontaneous
  Country: US (occurrence: US)
  Receive Date: 20140510
  Receipt Date: 20140510
  Transmission Date: 20141212
  Serious: No
  Sender: FDA-Public Use
  Company Number: US-BRISTOL-MYERS SQUIBB COMPANY-20174033

PATIENT
  Age: 48 Year
  Sex: Female

DRUGS (3)
  1. BYDUREON [Suspect]
     Indication: TYPE 2 DIABETES MELLITUS
     Route: 058
  2. LISINOPRIL [Concomitant]
     Indication: HYPERTENSION
  3. LEVOTHYROXINE [Concomitant]

REACTIONS (2)
  - Hyperchlorhydria [Unknown]
  - Eructation [Unknown]
